FAERS Safety Report 11162600 (Version 1)
Quarter: 2015Q2

REPORT INFORMATION
  Report Type: Spontaneous
  Country: NL (occurrence: None)
  Receive Date: 20150602
  Receipt Date: 20150602
  Transmission Date: 20150821
  Serious: Yes (Death, Hospitalization)
  Sender: FDA-Public Use
  Company Number: 2015COV00110

PATIENT
  Age: 72 Year
  Sex: Female

DRUGS (4)
  1. OMEPRAZOLE. [Concomitant]
     Active Substance: OMEPRAZOLE
  2. PLAQUENIL [Suspect]
     Active Substance: HYDROXYCHLOROQUINE SULFATE
     Indication: RHEUMATOID ARTHRITIS
     Dosage: 200
     Route: 048
     Dates: start: 2012, end: 20150428
  3. CALCI-D3 [Concomitant]
  4. METHOTREXATE [Suspect]
     Active Substance: METHOTREXATE
     Indication: RHEUMATOID ARTHRITIS
     Route: 048
     Dates: start: 1992, end: 20150428

REACTIONS (5)
  - Sepsis [None]
  - Pneumonia aspiration [None]
  - Polyneuropathy [None]
  - Ileus [None]
  - Multimorbidity [None]

NARRATIVE: CASE EVENT DATE: 20150428
